FAERS Safety Report 4491891-7 (Version None)
Quarter: 2004Q4

REPORT INFORMATION
  Report Type: 
  Country: None (occurrence: None)
  Receive Date: 20041029
  Receipt Date: 20041029
  Transmission Date: 20050328
  Serious: Yes (Life-Threatening, Other)
  Sender: FDA-Public Use
  Company Number: None

PATIENT
  Age: 72 Year
  Sex: Female
  Weight: 70.3075 kg

DRUGS (3)
  1. TRIOTROPIUM 18 MCG PFIZER BROMIDE [Suspect]
     Indication: CHRONIC OBSTRUCTIVE AIRWAYS DISEASE
     Dosage: 2 TIMES ONCE A DAY OTHER
     Route: 050
     Dates: start: 20041005, end: 20041005
  2. ADVAIR [Concomitant]
  3. ATROVENT [Concomitant]

REACTIONS (3)
  - ANXIETY [None]
  - DYSPNOEA [None]
  - LUNG INFECTION [None]
